FAERS Safety Report 8958065 (Version 1)
Quarter: 2012Q4

REPORT INFORMATION
  Report Type: 
  Country: US (occurrence: US)
  Receive Date: 20121211
  Receipt Date: 20121211
  Transmission Date: 20130627
  Serious: No
  Sender: FDA-Public Use
  Company Number: US-ASTRAZENECA-2012SE89827

PATIENT
  Age: 60 Year
  Sex: Male

DRUGS (2)
  1. PULMICORT FLEXHALER [Suspect]
     Route: 055
  2. OTHER MEDICATIONS [Concomitant]

REACTIONS (2)
  - Prostatic disorder [Unknown]
  - Drug administered to patient of inappropriate age [Unknown]
